FAERS Safety Report 7118860-2 (Version None)
Quarter: 2010Q4

REPORT INFORMATION
  Report Type: 
  Country: None (occurrence: None)
  Receive Date: 20101123
  Receipt Date: 20100902
  Transmission Date: 20110411
  Serious: No
  Sender: FDA-Public Use
  Company Number: US-KINGPHARMUSA00001-K201001104

PATIENT
  Sex: Male
  Weight: 81.633 kg

DRUGS (3)
  1. FLECTOR [Suspect]
     Indication: JOINT SPRAIN
     Dosage: 1 PATCH, Q 12 HOURS
     Route: 061
     Dates: start: 20100901, end: 20100901
  2. FLECTOR [Suspect]
     Indication: ARTHRALGIA
  3. ANTIHYPERTENSIVES [Concomitant]
     Indication: HYPERTENSION

REACTIONS (1)
  - APPLICATION SITE PAIN [None]
